FAERS Safety Report 11241423 (Version 1)
Quarter: 2015Q3

REPORT INFORMATION
  Report Type: Spontaneous
  Country: US (occurrence: US)
  Receive Date: 20150706
  Receipt Date: 20150706
  Transmission Date: 20151125
  Serious: No
  Sender: FDA-Public Use
  Company Number: US-ASTRAZENECA-2015SE55043

PATIENT
  Sex: Female
  Weight: 81.6 kg

DRUGS (1)
  1. BYDUREON [Suspect]
     Active Substance: EXENATIDE
     Route: 058
     Dates: start: 20150603

REACTIONS (5)
  - Injection site mass [Unknown]
  - Injection site warmth [Unknown]
  - Intentional device misuse [Unknown]
  - Injection site pruritus [Unknown]
  - Underdose [Unknown]
